FAERS Safety Report 20339962 (Version 3)
Quarter: 2022Q1

REPORT INFORMATION
  Report Type: Report from Study
  Country: KR (occurrence: KR)
  Receive Date: 20220117
  Receipt Date: 20220126
  Transmission Date: 20220423
  Serious: Yes (Hospitalization, Other)
  Sender: FDA-Public Use
  Company Number: KR-NOVARTISPH-NVSC2021KR104455

PATIENT
  Sex: Male
  Weight: 93.1 kg

DRUGS (38)
  1. RYDAPT [Suspect]
     Active Substance: MIDOSTAURIN
     Indication: Acute myeloid leukaemia
     Dosage: 50 MG, BID
     Route: 048
     Dates: start: 20210410, end: 20210412
  2. RYDAPT [Suspect]
     Active Substance: MIDOSTAURIN
     Dosage: 50 MG, BID
     Route: 048
     Dates: start: 20210416, end: 20210426
  3. ANAPROX [Concomitant]
     Active Substance: NAPROXEN SODIUM
     Indication: Pyrexia
     Dosage: 550 MG
     Route: 048
     Dates: start: 20210409, end: 20210412
  4. ANAPROX [Concomitant]
     Active Substance: NAPROXEN SODIUM
     Dosage: 275 MG
     Route: 048
     Dates: start: 20210420, end: 20210420
  5. ANAPROX [Concomitant]
     Active Substance: NAPROXEN SODIUM
     Dosage: 550 MG
     Route: 048
     Dates: start: 20210421, end: 20210423
  6. BATROXOBIN [Concomitant]
     Active Substance: BATROXOBIN
     Indication: Haemoptysis
     Dosage: 6 MG (2 KU/2ML)
     Route: 042
     Dates: start: 20210408, end: 20210412
  7. CANCIDAS [Concomitant]
     Active Substance: CASPOFUNGIN ACETATE
     Indication: Antifungal prophylaxis
     Dosage: 70 MG (INJ 70 MG)
     Route: 042
     Dates: start: 20210413, end: 20210413
  8. CANCIDAS [Concomitant]
     Active Substance: CASPOFUNGIN ACETATE
     Dosage: 50 MG (INJ 5 MG)
     Route: 042
     Dates: start: 20210414, end: 20210424
  9. COUGH NOS [Concomitant]
     Active Substance: DEXTROMETHORPHAN HYDROBROMIDE OR DEXTROMETHORPHAN HYDROBROMIDE\DOXYLAMINE SUCCINATE OR DEXTROMETHORP
     Indication: Haemoptysis
     Dosage: 3 DF
     Route: 048
     Dates: start: 20210401, end: 20210412
  10. LEVOFLOXACIN [Concomitant]
     Active Substance: LEVOFLOXACIN
     Indication: Pyrexia
     Dosage: 750 MG (750MG/150ML)
     Route: 042
     Dates: start: 20210407, end: 20210412
  11. CYTARABINE [Concomitant]
     Active Substance: CYTARABINE
     Indication: Acute myeloid leukaemia
     Dosage: 432 MG (0.1G/2ML)
     Route: 042
     Dates: start: 20210403, end: 20210409
  12. DEXAMETHASONE [Concomitant]
     Active Substance: DEXAMETHASONE
     Indication: Pyrexia
     Dosage: 5 MG, PRN ( INJ 5MG/ML)
     Route: 042
     Dates: start: 20210402, end: 20210420
  13. PROPACETAMOL HYDROCHLORIDE [Concomitant]
     Active Substance: PROPACETAMOL HYDROCHLORIDE
     Indication: Pyrexia
     Dosage: 2 G
     Route: 042
     Dates: start: 20210410, end: 20210410
  14. GRASIN [Concomitant]
     Indication: Neutropenia
     Dosage: 150 UG (300UG)
     Route: 058
     Dates: start: 20210416, end: 20210422
  15. HEPA-MERZ INFUSION [Concomitant]
     Indication: Hepatic encephalopathy prophylaxis
     Dosage: 40 ML
     Route: 042
     Dates: start: 20210415, end: 20210419
  16. HEPA-MERZ INFUSION [Concomitant]
     Dosage: 40 ML
     Route: 042
     Dates: start: 20210420
  17. IDARU [Concomitant]
     Indication: Acute myeloid leukaemia
     Dosage: 25 MG
     Route: 042
     Dates: start: 20210403, end: 20210405
  18. LANSOPRAZOLE [Concomitant]
     Active Substance: LANSOPRAZOLE
     Indication: Gastritis prophylaxis
     Dosage: 15 MG
     Route: 048
     Dates: start: 20210421, end: 20210501
  19. METOCLOPRAMIDE HYDROCHLORIDE [Concomitant]
     Active Substance: METOCLOPRAMIDE HYDROCHLORIDE
     Indication: Prophylaxis of nausea and vomiting
     Dosage: 20 MG
     Route: 042
     Dates: start: 20210410, end: 20210411
  20. METOCLOPRAMIDE HYDROCHLORIDE [Concomitant]
     Active Substance: METOCLOPRAMIDE HYDROCHLORIDE
     Dosage: 10 MG
     Route: 042
     Dates: start: 20210412, end: 20210412
  21. MAXIPIME [Concomitant]
     Active Substance: CEFEPIME HYDROCHLORIDE
     Indication: Pyrexia
     Dosage: 6 G
     Route: 042
     Dates: start: 20210407, end: 20210411
  22. MAXIPIME [Concomitant]
     Active Substance: CEFEPIME HYDROCHLORIDE
     Dosage: 2 G
     Route: 042
     Dates: start: 20210412, end: 20210412
  23. NOXAFIL [Concomitant]
     Active Substance: POSACONAZOLE
     Indication: Prophylaxis
     Dosage: 300 MG
     Route: 048
     Dates: start: 20210404, end: 20210412
  24. PANTOPRAZOLE SODIUM [Concomitant]
     Active Substance: PANTOPRAZOLE SODIUM
     Indication: Pain prophylaxis
     Dosage: 40 MG
     Route: 042
     Dates: start: 20210412, end: 20210412
  25. PANTOPRAZOLE SODIUM [Concomitant]
     Active Substance: PANTOPRAZOLE SODIUM
     Dosage: 80 MG
     Route: 042
     Dates: start: 20210413, end: 20210419
  26. PENIRAMIN [Concomitant]
     Indication: Premedication
     Dosage: 4 MG, PRN
     Route: 042
     Dates: start: 20210331, end: 20210412
  27. MEPERIDINE HYDROCHLORIDE [Concomitant]
     Active Substance: MEPERIDINE HYDROCHLORIDE
     Indication: Pain prophylaxis
     Dosage: 25 MG
     Route: 030
     Dates: start: 20210416, end: 20210416
  28. PHOSTEN [Concomitant]
     Indication: Prophylaxis
     Dosage: 20 ML
     Route: 042
     Dates: start: 20210415, end: 20210415
  29. PIGMIN [Concomitant]
     Indication: Appendicitis perforated
     Dosage: 10 MG
     Route: 042
     Dates: start: 20210412, end: 20210412
  30. TACENOL [Concomitant]
     Indication: Pyrexia
     Dosage: 1300 MG, PRN (8HOURS ER TAB)
     Route: 048
     Dates: start: 20210406, end: 20210412
  31. TAPOCIN [Concomitant]
     Indication: Pyrexia
     Dosage: 400 MG
     Route: 042
     Dates: start: 20210408, end: 20210421
  32. TAPOCIN [Concomitant]
     Indication: Infection prophylaxis
  33. TRANEXAMIC ACID [Concomitant]
     Active Substance: TRANEXAMIC ACID
     Indication: Haemoptysis
     Dosage: 1500 MG (500MG/5ML)
     Route: 042
     Dates: start: 20210408, end: 20210412
  34. TRAMADOL HYDROCHLORIDE [Concomitant]
     Active Substance: TRAMADOL HYDROCHLORIDE
     Indication: Appendicitis perforated
     Dosage: 50 MG
     Route: 042
     Dates: start: 20210413, end: 20210413
  35. TRAMADOL HYDROCHLORIDE [Concomitant]
     Active Substance: TRAMADOL HYDROCHLORIDE
     Indication: Anal abscess
     Dosage: 50 MG
     Route: 042
     Dates: start: 20210427, end: 20210427
  36. DAUNORUBICIN HYDROCHLORIDE [Concomitant]
     Active Substance: DAUNORUBICIN HYDROCHLORIDE
     Indication: Acute myeloid leukaemia
     Dosage: 77 MG
     Route: 042
     Dates: start: 20201211, end: 20201213
  37. DAUNORUBICIN HYDROCHLORIDE [Concomitant]
     Active Substance: DAUNORUBICIN HYDROCHLORIDE
     Dosage: 72 MG
     Route: 042
     Dates: start: 20210101, end: 20210102
  38. TASNA [Concomitant]
     Indication: Prophylaxis
     Dosage: 0.5 G, PRN
     Route: 065
     Dates: start: 20210403, end: 20210412

REACTIONS (4)
  - Anal abscess [Recovered/Resolved]
  - Appendicitis perforated [Recovering/Resolving]
  - Diarrhoea [Recovered/Resolved]
  - Stomatitis [Recovered/Resolved]

NARRATIVE: CASE EVENT DATE: 20210411
